FAERS Safety Report 16049650 (Version 3)
Quarter: 2019Q3

REPORT INFORMATION
  Report Type: Spontaneous
  Country: US (occurrence: US)
  Receive Date: 20190307
  Receipt Date: 20190715
  Transmission Date: 20191004
  Serious: Yes (Death, Other)
  Sender: FDA-Public Use
  Company Number: US-009507513-1902USA009687

PATIENT
  Sex: Male

DRUGS (1)
  1. PROVENTIL [Suspect]
     Active Substance: ALBUTEROL
     Dosage: UNK
     Dates: end: 2019

REACTIONS (3)
  - Product quality issue [Unknown]
  - Poor quality device used [Unknown]
  - Death [Fatal]

NARRATIVE: CASE EVENT DATE: 2019
